FAERS Safety Report 8729371 (Version 3)
Quarter: 2012Q4

REPORT INFORMATION
  Report Type: 
  Country: ES (occurrence: ES)
  Receive Date: 20120817
  Receipt Date: 20121031
  Transmission Date: 20130627
  Serious: Yes (Hospitalization)
  Sender: FDA-Public Use
  Company Number: ES-ASTRAZENECA-2012SE56502

PATIENT
  Age: 77 Year
  Sex: Female

DRUGS (6)
  1. SEROQUEL [Suspect]
     Indication: RESTLESSNESS
     Route: 048
     Dates: start: 20120719, end: 20120722
  2. LEVOFLOXACIN [Interacting]
     Indication: INFECTION
     Route: 042
     Dates: start: 20120719, end: 20120722
  3. TORADOL [Interacting]
     Indication: ANALGESIC THERAPY
     Route: 042
     Dates: start: 20120719
  4. OMEPRAZOLE [Suspect]
     Indication: PROPHYLAXIS
     Route: 048
     Dates: start: 20110603, end: 20120722
  5. NOLOTIL [Concomitant]
     Indication: ANALGESIC THERAPY
     Route: 048
     Dates: start: 20120711, end: 20120722
  6. RIFALDIN [Concomitant]
     Indication: INFECTION
     Route: 042
     Dates: start: 20120719, end: 20120722

REACTIONS (4)
  - Drug interaction [Unknown]
  - Status epilepticus [Not Recovered/Not Resolved]
  - Hypomagnesaemia [Unknown]
  - Hypokalaemia [Unknown]
